FAERS Safety Report 8774066 (Version 1)
Quarter: 2012Q4

REPORT INFORMATION
  Report Type: 
  Country: GB (occurrence: GB)
  Receive Date: 20120908
  Receipt Date: 20120908
  Transmission Date: 20130627
  Serious: Yes (Other)
  Sender: FDA-Public Use
  Company Number: GB-ABBOTT-12P-167-0974749-00

PATIENT
  Sex: Female

DRUGS (6)
  1. REMIFENTANIL [Suspect]
     Indication: ANALGESIC THERAPY
     Dosage: 40 mcg/ml/min x 4
     Route: 042
  2. REMIFENTANIL [Suspect]
     Indication: LABOUR PAIN
  3. FENTANYL [Suspect]
     Indication: PRODUCT USED FOR UNKNOWN INDICATION
     Dosage: 2 mcg/ml
     Route: 008
  4. HARTMANN^S SOLUTION [Concomitant]
     Indication: PRODUCT USED FOR UNKNOWN INDICATION
     Route: 042
  5. SYNTOCINON [Concomitant]
     Indication: PRODUCT USED FOR UNKNOWN INDICATION
     Route: 042
  6. BUPIVICAINE [Concomitant]
     Indication: PRODUCT USED FOR UNKNOWN INDICATION
     Route: 008

REACTIONS (3)
  - Toxicity to various agents [Recovered/Resolved]
  - Respiratory arrest [Recovered/Resolved]
  - Overdose [Recovered/Resolved]
